FAERS Safety Report 24332208 (Version 9)
Quarter: 2025Q3

REPORT INFORMATION
  Report Type: Report from Study
  Country: EU (occurrence: EU)
  Receive Date: 20240918
  Receipt Date: 20250723
  Transmission Date: 20251021
  Serious: Yes (Hospitalization)
  Sender: ROCHE
  Company Number: None

PATIENT
  Age: 56 Year
  Sex: Female
  Weight: 120 kg

DRUGS (20)
  1. TRASTUZUMAB [Suspect]
     Active Substance: TRASTUZUMAB
     Indication: Colon cancer
     Dosage: 6 MG/KG, ON CYCLE 1 DAY 22 THEN DAY 1 AND DAY 22 OF EACH SUBSEQUENT 6 WEEK (42-DAY) CYCLE
     Route: 042
     Dates: start: 20240705, end: 20240725
  2. TRASTUZUMAB [Suspect]
     Active Substance: TRASTUZUMAB
     Dosage: 6 MG/KG, ON CYCLE 1 DAY 22 THEN DAY 1 AND DAY 22 OF EACH SUBSEQUENT 6 WEEK (42-DAY) CYCLE
     Route: 042
     Dates: start: 20240726, end: 20240901
  3. TRASTUZUMAB [Suspect]
     Active Substance: TRASTUZUMAB
     Dosage: 6 MG/KG, ON CYCLE 1 DAY 22 THEN DAY 1 AND DAY 22 OF EACH SUBSEQUENT 6 WEEK (42-DAY) CYCLE
     Route: 042
     Dates: start: 20240902
  4. OXALIPLATIN [Suspect]
     Active Substance: OXALIPLATIN
     Indication: Colon cancer
     Dosage: 85 MG/M2 EVERY 2 WEEKS ON DAYS 1, 15 AND 29 OF EACH 6-WEEK (42-DAY) CYCLE
     Route: 042
     Dates: start: 20240705, end: 20240802
  5. OXALIPLATIN [Suspect]
     Active Substance: OXALIPLATIN
     Dosage: 85 MG/M2 EVERY 2 WEEKS ON DAYS 1, 15 AND 29 OF EACH 6-WEEK (42-DAY) CYCLE
     Route: 042
     Dates: start: 20240902, end: 20240916
  6. OXALIPLATIN [Suspect]
     Active Substance: OXALIPLATIN
     Dosage: 85 MG/M2 EVERY 2 WEEKS ON DAYS 1, 15 AND 29 OF EACH 6-WEEK (42-DAY) CYCLE
     Route: 042
     Dates: start: 20240707, end: 20240802
  7. LOPERAMIDE [Suspect]
     Active Substance: LOPERAMIDE
     Indication: Prophylaxis against diarrhoea
     Dosage: 2-4 MG, 4X/ DAY
     Route: 048
     Dates: start: 20240705
  8. LOPERAMIDE [Suspect]
     Active Substance: LOPERAMIDE
     Dosage: UNK
     Route: 048
  9. FLUOROURACIL [Suspect]
     Active Substance: FLUOROURACIL
     Indication: Colon cancer
     Dosage: 400 MG/M2, QOW
     Route: 042
     Dates: start: 20240705, end: 20240802
  10. FLUOROURACIL [Suspect]
     Active Substance: FLUOROURACIL
     Dosage: EVERY 2 WEEKS ON DAYS
     Route: 042
     Dates: start: 20240705, end: 20240802
  11. FLUOROURACIL [Suspect]
     Active Substance: FLUOROURACIL
     Dosage: EVERY 2 WEEKS ON DAYS
     Route: 042
     Dates: start: 20240902, end: 20240916
  12. FLUOROURACIL [Suspect]
     Active Substance: FLUOROURACIL
     Dosage: EVERY 2 WEEKS ON DAYS
     Route: 042
     Dates: start: 20240902, end: 20240916
  13. TUCATINIB [Suspect]
     Active Substance: TUCATINIB
     Indication: Colon cancer
     Dosage: 250 MG BID
     Route: 048
     Dates: start: 20240726, end: 20240818
  14. TUCATINIB [Suspect]
     Active Substance: TUCATINIB
     Dosage: 250 MG BID
     Route: 048
     Dates: start: 20240902, end: 20240916
  15. LEUCOVORIN CALCIUM [Suspect]
     Active Substance: LEUCOVORIN CALCIUM
     Indication: Colon cancer
     Dosage: 400 MG/M2 EVERY 2 WEEKSON DAYS 1, 15 AND 29 OF EACH 6-WEEK CYCLE
     Route: 042
     Dates: start: 20240705, end: 20240802
  16. LEUCOVORIN CALCIUM [Suspect]
     Active Substance: LEUCOVORIN CALCIUM
     Dosage: 400 MG/M2 EVERY 2 WEEKSON DAYS 1, 15 AND 29 OF EACH 6-WEEK CYCLE
     Route: 042
     Dates: start: 20240902, end: 20240916
  17. METFORMIN HYDROCHLORIDE [Concomitant]
     Active Substance: METFORMIN HYDROCHLORIDE
     Indication: Restless legs syndrome
     Dates: start: 20210713, end: 20240813
  18. METFORMIN HYDROCHLORIDE [Concomitant]
     Active Substance: METFORMIN HYDROCHLORIDE
     Indication: Type 2 diabetes mellitus
     Dates: start: 20240923, end: 20240925
  19. LOSARTAN [Concomitant]
     Active Substance: LOSARTAN
     Dates: start: 2024, end: 20240814
  20. ESCITALOPRAM [Concomitant]
     Active Substance: ESCITALOPRAM OXALATE
     Indication: Depression

REACTIONS (2)
  - Acute kidney injury [Recovered/Resolved with Sequelae]
  - Gastrointestinal stoma output increased [Recovered/Resolved with Sequelae]

NARRATIVE: CASE EVENT DATE: 20240813
